FAERS Safety Report 19761295 (Version 1)
Quarter: 2021Q3

REPORT INFORMATION
  Report Type: Spontaneous
  Country: BR (occurrence: BR)
  Receive Date: 20210827
  Receipt Date: 20210827
  Transmission Date: 20211014
  Serious: Yes (Death)
  Sender: FDA-Public Use
  Company Number: BR-FRESENIUS KABI-FK202109149

PATIENT
  Age: 35 Year
  Sex: Male

DRUGS (3)
  1. CAFFEINE CITRATE (MANUFACTURER UNKNOWN) [Suspect]
     Active Substance: CAFFEINE CITRATE
     Indication: DRUG ABUSE
     Dosage: COCAINE CONTAMINANT
     Route: 065
  2. LIDOCAINE (MANUFACTURER UNKNOWN) [Suspect]
     Active Substance: LIDOCAINE
     Indication: DRUG ABUSE
     Dosage: COCAINE CONTAMINANT
     Route: 065
  3. COCAINE [Suspect]
     Active Substance: COCAINE
     Indication: DRUG ABUSE
     Dosage: CONTAMINANTS CAFFEINE AND LIDOCAINE
     Route: 065

REACTIONS (1)
  - Overdose [Fatal]
